FAERS Safety Report 5698773-3 (Version None)
Quarter: 2008Q2

REPORT INFORMATION
  Report Type: 
  Country: None (occurrence: None)
  Receive Date: 20080404
  Receipt Date: 20080320
  Transmission Date: 20081010
  Serious: Yes (Hospitalization)
  Sender: FDA-Public Use
  Company Number: 8031136

PATIENT
  Sex: Male

DRUGS (1)
  1. KEPPRA [Suspect]
     Dates: start: 20070901

REACTIONS (2)
  - CONVULSION [None]
  - THROMBOCYTOPENIA [None]
